FAERS Safety Report 21716504 (Version 2)
Quarter: 2023Q1

REPORT INFORMATION
  Report Type: Spontaneous
  Country: US (occurrence: US)
  Receive Date: 20221212
  Receipt Date: 20230228
  Transmission Date: 20230418
  Serious: Yes (Hospitalization)
  Sender: FDA-Public Use
  Company Number: US-ENZYVANT THERAPEUTICS, INC.-US2022ENZ00011

PATIENT

DRUGS (5)
  1. RETHYMIC [Suspect]
     Active Substance: ALLOGENIC THYMOCYTE-DEPLETED THYMUS TISSUE-AGDC
     Indication: DiGeorge^s syndrome
     Dosage: 19 SLICES (8288 MM2/M2), SINGLE
     Dates: start: 20220802, end: 20220802
  2. LAPINE T-LYMPHOCYTE IMMUNE GLOBULIN [Concomitant]
     Active Substance: LAPINE T-LYMPHOCYTE IMMUNE GLOBULIN
     Indication: Product used for unknown indication
     Dosage: 21 MILLIGRAM, EVERY 24 HOURS
     Route: 042
     Dates: start: 20220728, end: 20220731
  3. METHYLPREDNISOLONE [Concomitant]
     Active Substance: METHYLPREDNISOLONE
     Indication: Product used for unknown indication
     Dosage: 20.625 MILLIGRAM, SINGLE
     Route: 042
     Dates: start: 20220728, end: 20220728
  4. METHYLPREDNISOLONE [Concomitant]
     Active Substance: METHYLPREDNISOLONE
     Dosage: 5.2 MILLIGRAM EVERY 6 HOURS
     Route: 042
     Dates: start: 20220728, end: 20220731
  5. CYCLOSPORINE [Concomitant]
     Active Substance: CYCLOSPORINE
     Indication: Product used for unknown indication
     Dosage: EVERY 12 HOURS
     Route: 048
     Dates: start: 20220727

REACTIONS (1)
  - Adenovirus infection [Recovered/Resolved]

NARRATIVE: CASE EVENT DATE: 20220808
